FAERS Safety Report 12347421 (Version 6)
Quarter: 2018Q4

REPORT INFORMATION
  Report Type: Report from Study
  Country: CO (occurrence: CO)
  Receive Date: 20160509
  Receipt Date: 20181104
  Transmission Date: 20190204
  Serious: Yes (Hospitalization)
  Sender: FDA-Public Use
  Company Number: PHHY2016CO059375

PATIENT
  Sex: Female
  Weight: 50 kg

DRUGS (5)
  1. REVOLADE [Suspect]
     Active Substance: ELTROMBOPAG
     Dosage: 25 MG, QD
     Route: 048
  2. PREDNISOLONE. [Concomitant]
     Active Substance: PREDNISOLONE
     Indication: PLATELET COUNT ABNORMAL
     Dosage: 50 MG, QD
     Route: 048
  3. FOLIC ACID. [Concomitant]
     Active Substance: FOLIC ACID
     Indication: PRODUCT USED FOR UNKNOWN INDICATION
     Dosage: 5 MG, QD
     Route: 048
  4. REVOLADE [Suspect]
     Active Substance: ELTROMBOPAG
     Indication: IMMUNE THROMBOCYTOPENIC PURPURA
     Dosage: 25 MG, QD
     Route: 048
     Dates: start: 20160115
  5. PREDNISONE. [Concomitant]
     Active Substance: PREDNISONE
     Indication: PRODUCT USED FOR UNKNOWN INDICATION
     Dosage: 5 MG, QD
     Route: 048

REACTIONS (15)
  - Haemorrhage [Unknown]
  - Contusion [Unknown]
  - Menorrhagia [Unknown]
  - Platelet count decreased [Unknown]
  - Pain [Unknown]
  - Petechiae [Unknown]
  - Insomnia [Unknown]
  - Headache [Unknown]
  - Asthenia [Unknown]
  - Disease recurrence [Unknown]
  - Platelet count increased [Unknown]
  - Rash [Unknown]
  - Immune thrombocytopenic purpura [Unknown]
  - Gingival bleeding [Unknown]
  - Menstrual disorder [Unknown]
